FAERS Safety Report 11002939 (Version 1)
Quarter: 2015Q2

REPORT INFORMATION
  Report Type: Spontaneous
  Country: US (occurrence: US)
  Receive Date: 20150408
  Receipt Date: 20150408
  Transmission Date: 20150821
  Serious: Yes (Other)
  Sender: FDA-Public Use
  Company Number: US-ASTRAZENECA-2015SE32350

PATIENT
  Age: 62 Year
  Sex: Female

DRUGS (10)
  1. MELOXICAM. [Concomitant]
     Active Substance: MELOXICAM
  2. GENERIC FOR ADAVAN [Concomitant]
  3. CYCLOBENEATRINE [Concomitant]
     Indication: PRURITUS
  4. TRAZODONE [Concomitant]
     Active Substance: TRAZODONE HYDROCHLORIDE
  5. FARXIGA [Suspect]
     Active Substance: DAPAGLIFLOZIN PROPANEDIOL
     Indication: TYPE 2 DIABETES MELLITUS
     Route: 048
     Dates: start: 2014, end: 2014
  6. GLYBURIDE. [Concomitant]
     Active Substance: GLYBURIDE
  7. HYDRXYDINE [Concomitant]
  8. FENOFIBRIC [Concomitant]
  9. LEXIPRO [Concomitant]
  10. CRESTOR [Suspect]
     Active Substance: ROSUVASTATIN CALCIUM
     Indication: BLOOD CHOLESTEROL
     Route: 048

REACTIONS (8)
  - Anaphylactic shock [Unknown]
  - Herpes zoster [Unknown]
  - Rash [Not Recovered/Not Resolved]
  - Musculoskeletal discomfort [Not Recovered/Not Resolved]
  - Myalgia [Unknown]
  - Spondylolisthesis [Not Recovered/Not Resolved]
  - Nerve injury [Not Recovered/Not Resolved]
  - Rash generalised [Not Recovered/Not Resolved]

NARRATIVE: CASE EVENT DATE: 201406
